FAERS Safety Report 5716610-5 (Version None)
Quarter: 2008Q2

REPORT INFORMATION
  Report Type: 
  Country: None (occurrence: None)
  Receive Date: 20080424
  Receipt Date: 20080410
  Transmission Date: 20081010
  Serious: Yes (Hospitalization, Other)
  Sender: FDA-Public Use
  Company Number: US-AMGEN-US274078

PATIENT
  Sex: Female
  Weight: 65.4 kg

DRUGS (6)
  1. ENBREL [Suspect]
     Indication: RHEUMATOID ARTHRITIS
     Route: 058
     Dates: start: 20070629
  2. PREDNISONE [Concomitant]
     Route: 048
     Dates: start: 20070805, end: 20071227
  3. TYLENOL [Concomitant]
     Route: 048
     Dates: start: 20070702
  4. VITAMIN CAP [Concomitant]
     Route: 048
  5. ALEVE [Concomitant]
     Route: 048
     Dates: start: 20070801, end: 20070814
  6. CORTICOSTEROID NOS [Concomitant]
     Route: 014
     Dates: start: 20071009, end: 20071227

REACTIONS (1)
  - UTERINE DISORDER [None]
